FAERS Safety Report 19684513 (Version 1)
Quarter: 2021Q3

REPORT INFORMATION
  Report Type: Spontaneous
  Country: US (occurrence: US)
  Receive Date: 20210811
  Receipt Date: 20210811
  Transmission Date: 20211014
  Serious: No
  Sender: FDA-Public Use
  Company Number: US-LUPIN PHARMACEUTICALS INC.-2021-14232

PATIENT
  Sex: Male

DRUGS (2)
  1. DULOXETINE. [Suspect]
     Active Substance: DULOXETINE
     Indication: NECK PAIN
     Dosage: UNK
     Route: 065
  2. TIZANIDINE. [Suspect]
     Active Substance: TIZANIDINE
     Indication: NECK PAIN
     Dosage: UNK
     Route: 065

REACTIONS (1)
  - Treatment failure [Unknown]
